FAERS Safety Report 6857086-4 (Version None)
Quarter: 2010Q3

REPORT INFORMATION
  Report Type: 
  Country: None (occurrence: None)
  Receive Date: 20100719
  Receipt Date: 20100709
  Transmission Date: 20110219
  Serious: Yes (Life-Threatening)
  Sender: FDA-Public Use
  Company Number: B0384830A

PATIENT
  Sex: Female
  Weight: 87.2 kg

DRUGS (3)
  1. LAMICTAL [Suspect]
     Dosage: 50MG PER DAY
     Route: 048
     Dates: start: 20050531, end: 20050615
  2. EFFEXOR [Concomitant]
     Route: 048
     Dates: start: 20050127
  3. ZYPREXA [Concomitant]
     Route: 048
     Dates: start: 20050126

REACTIONS (4)
  - ANGIOEDEMA [None]
  - PARAESTHESIA ORAL [None]
  - PHARYNGEAL OEDEMA [None]
  - RASH [None]
